FAERS Safety Report 5723699-6 (Version None)
Quarter: 2008Q2

REPORT INFORMATION
  Report Type: 
  Country: None (occurrence: None)
  Receive Date: 20080429
  Receipt Date: 20080429
  Transmission Date: 20081010
  Serious: Yes (Other)
  Sender: FDA-Public Use
  Company Number: None

PATIENT
  Sex: Male
  Weight: 90.7194 kg

DRUGS (1)
  1. BOTOX [Suspect]
     Indication: MUSCLE SPASTICITY
     Dosage: 900 UNITS EVERY 3 MONTHS INJECTIONS
     Dates: start: 20060701, end: 20080214

REACTIONS (2)
  - APHASIA [None]
  - DYSPHAGIA [None]
